FAERS Safety Report 7166665-9 (Version None)
Quarter: 2010Q4

REPORT INFORMATION
  Report Type: 
  Country: None (occurrence: None)
  Receive Date: 20101216
  Receipt Date: 20101213
  Transmission Date: 20110411
  Serious: Yes (Life-Threatening)
  Sender: FDA-Public Use
  Company Number: US-B.I. PHARMACEUTICALS,INC./RIDGEFIELD-2010-BP-11914BP

PATIENT
  Sex: Female

DRUGS (10)
  1. SPIRIVA [Suspect]
     Indication: BRONCHITIS
     Dosage: 18 MCG
     Route: 055
     Dates: start: 20100927
  2. ASMANEX TWISTHALER [Suspect]
     Indication: BRONCHITIS
     Dates: start: 20101001
  3. AZITHROMYCIN [Concomitant]
     Indication: BRONCHITIS
  4. DILTIAZEM [Concomitant]
     Dosage: 180 MG
  5. CETIRIZINE HCL [Concomitant]
     Dosage: 10 MG
  6. GEMFIBROZIL [Concomitant]
     Dosage: 600 MG
  7. ASPIRIN [Concomitant]
     Dosage: 81 MG
  8. CITRACAL D [Concomitant]
     Dosage: 400 MG
  9. LOVAZA [Concomitant]
     Dosage: 1000 MG
  10. FOLIC ACID [Concomitant]
     Dosage: 400 MG

REACTIONS (5)
  - LIP SWELLING [None]
  - NASOPHARYNGITIS [None]
  - SWOLLEN TONGUE [None]
  - THROAT TIGHTNESS [None]
  - WHEEZING [None]
